FAERS Safety Report 4560004-5 (Version None)
Quarter: 2005Q1

REPORT INFORMATION
  Report Type: 
  Country: None (occurrence: None)
  Receive Date: 20050120
  Receipt Date: 20050120
  Transmission Date: 20050727
  Serious: No
  Sender: FDA-Public Use
  Company Number: None

PATIENT

DRUGS (1)
  1. BACITRACIN-NEOMYCIN-POLYMYXIN [Suspect]
     Route: 047

REACTIONS (2)
  - DERMATITIS CONTACT [None]
  - RASH [None]
